FAERS Safety Report 10402865 (Version 1)
Quarter: 2014Q3

REPORT INFORMATION
  Report Type: Spontaneous
  Country: US (occurrence: None)
  Receive Date: 20140820
  Receipt Date: 20140820
  Transmission Date: 20150326
  Serious: Yes (Death, Other)
  Sender: FDA-Public Use
  Company Number: 2014-20164

PATIENT
  Age: 95 Year

DRUGS (1)
  1. EYLEA [Suspect]
     Active Substance: AFLIBERCEPT
     Dates: start: 20120402, end: 20140612

REACTIONS (1)
  - Death [None]

NARRATIVE: CASE EVENT DATE: 20140805
